FAERS Safety Report 17685529 (Version 2)
Quarter: 2020Q2

REPORT INFORMATION
  Report Type: Spontaneous
  Country: FI (occurrence: FI)
  Receive Date: 20200420
  Receipt Date: 20200611
  Transmission Date: 20200714
  Serious: Yes (Other)
  Sender: FDA-Public Use
  Company Number: NVSC2020FI103363

PATIENT
  Age: 52 Year
  Sex: Female

DRUGS (2)
  1. DOCETAXEL. [Suspect]
     Active Substance: DOCETAXEL
     Indication: LOBULAR BREAST CARCINOMA IN SITU
     Dosage: 2 CYCLES
     Route: 065
  2. FILGRASTIM [Suspect]
     Active Substance: FILGRASTIM
     Indication: LOBULAR BREAST CARCINOMA IN SITU
     Dosage: UNK (4 DOSES)
     Route: 065

REACTIONS (5)
  - Aortitis [Unknown]
  - Product use in unapproved indication [Unknown]
  - Pyrexia [Unknown]
  - Vasculitis [Recovered/Resolved]
  - Chest pain [Unknown]

NARRATIVE: CASE EVENT DATE: 2018
